FAERS Safety Report 7461636-7 (Version None)
Quarter: 2011Q2

REPORT INFORMATION
  Report Type: 
  Country: None (occurrence: None)
  Receive Date: 20110506
  Receipt Date: 20110502
  Transmission Date: 20111010
  Serious: Yes (Other)
  Sender: FDA-Public Use
  Company Number: US-ABBOTT-10P-163-0683448-00

PATIENT
  Sex: Female
  Weight: 51.756 kg

DRUGS (6)
  1. FOSAMAX [Concomitant]
     Indication: PRODUCT USED FOR UNKNOWN INDICATION
  2. ANTIHISTAMINES [Concomitant]
     Indication: PRODUCT USED FOR UNKNOWN INDICATION
  3. HUMIRA [Suspect]
     Indication: PSORIATIC ARTHROPATHY
     Route: 058
     Dates: start: 20090101, end: 20100929
  4. TRAZODONE [Concomitant]
     Indication: INSOMNIA
  5. VITAMINS [Concomitant]
     Indication: VITAMIN SUPPLEMENTATION
  6. GABAPENTIN [Concomitant]
     Indication: BACK DISORDER

REACTIONS (10)
  - VACCINATION COMPLICATION [None]
  - ULNAR NERVE INJURY [None]
  - MUSCULAR WEAKNESS [None]
  - NECK PAIN [None]
  - PAIN IN EXTREMITY [None]
  - AXONAL NEUROPATHY [None]
  - UNEVALUABLE EVENT [None]
  - POSTERIOR INTEROSSEOUS SYNDROME [None]
  - RADICULITIS BRACHIAL [None]
  - MUSCULOSKELETAL PAIN [None]
